FAERS Safety Report 10380339 (Version 10)
Quarter: 2022Q3

REPORT INFORMATION
  Report Type: Report from Study
  Country: IL (occurrence: IL)
  Receive Date: 20140813
  Receipt Date: 20220920
  Transmission Date: 20221026
  Serious: Yes (Hospitalization, Other)
  Sender: FDA-Public Use
  Company Number: IL-SHIRE-IL201404868

PATIENT
  Age: 87 Year
  Sex: Male
  Weight: 68.934 kg

DRUGS (28)
  1. VELAGLUCERASE ALFA [Suspect]
     Active Substance: VELAGLUCERASE ALFA
     Indication: Gaucher^s disease
     Dosage: 15 INTERNATIONAL UNIT/KILOGRAM, Q2WEEKS
     Route: 041
     Dates: start: 20091124, end: 20110401
  2. VELAGLUCERASE ALFA [Suspect]
     Active Substance: VELAGLUCERASE ALFA
     Dosage: 30 INTERNATIONAL UNIT/KILOGRAM, Q2WEEKS
     Route: 041
     Dates: start: 20110421, end: 20111109
  3. VELAGLUCERASE ALFA [Suspect]
     Active Substance: VELAGLUCERASE ALFA
     Dosage: 60 INTERNATIONAL UNIT/KILOGRAM, Q2WEEKS
     Route: 041
     Dates: start: 20111115
  4. VELAGLUCERASE ALFA [Suspect]
     Active Substance: VELAGLUCERASE ALFA
     Dosage: 60 INTERNATIONAL UNIT/KILOGRAM, Q2WEEKS
     Route: 041
     Dates: start: 20111115, end: 20191008
  5. EPINEPHRINE [Concomitant]
     Active Substance: EPINEPHRINE
     Indication: Rectal haemorrhage
     Dosage: UNK
     Route: 065
     Dates: start: 20140819, end: 20140819
  6. EPINEPHRINE [Concomitant]
     Active Substance: EPINEPHRINE
     Indication: Upper gastrointestinal haemorrhage
  7. CEFUROXIME [Concomitant]
     Active Substance: CEFUROXIME
     Indication: Urinary tract infection
     Dosage: UNK
     Route: 065
     Dates: start: 201407
  8. CEFUROXIME [Concomitant]
     Active Substance: CEFUROXIME
     Indication: Pyrexia
     Dosage: UNK UNK, BID
     Route: 048
     Dates: start: 20140801, end: 20140805
  9. CEFUROXIME [Concomitant]
     Active Substance: CEFUROXIME
     Indication: Bacteraemia
  10. CEFUROXIME [Concomitant]
     Active Substance: CEFUROXIME
     Indication: Pneumonia klebsiella
  11. SELEGILINE HYDROCHLORIDE [Concomitant]
     Active Substance: SELEGILINE HYDROCHLORIDE
     Indication: Tremor
     Dosage: UNK UNK, QD
     Route: 048
     Dates: start: 2021
  12. HYZAAR [Concomitant]
     Active Substance: HYDROCHLOROTHIAZIDE\LOSARTAN POTASSIUM
     Indication: Hypertension
     Dosage: UNK UNK, QD
     Route: 048
     Dates: start: 2010
  13. CHLORPHENIRAMINE MALEATE [Concomitant]
     Active Substance: CHLORPHENIRAMINE MALEATE
     Indication: Cholangitis
     Dosage: 2 MILLIGRAM, BID
     Route: 048
     Dates: start: 20140116, end: 201402
  14. METHYLPREDNISOLONE [Concomitant]
     Active Substance: METHYLPREDNISOLONE
     Indication: Cholangitis
     Dosage: 40 MILLIGRAM, QD
     Route: 042
     Dates: start: 20140116, end: 201402
  15. CEFTRIAXONE [Concomitant]
     Active Substance: CEFTRIAXONE
     Indication: Bacteraemia
     Dosage: UNK UNK, QD
     Route: 042
     Dates: start: 20140730, end: 20140801
  16. CEFAZOLIN [Concomitant]
     Active Substance: CEFAZOLIN
     Indication: Pneumonia klebsiella
     Dosage: UNK
     Route: 042
     Dates: start: 20150430, end: 20150505
  17. Ceforal solutab [Concomitant]
     Indication: Pneumonia klebsiella
     Dosage: 500 MILLIGRAM, TID
     Route: 048
     Dates: start: 20150505, end: 20150510
  18. DISEPTYL FORTE [Concomitant]
     Indication: Prophylaxis
     Dosage: UNK
     Route: 048
     Dates: start: 201509
  19. LOSARTAN POTASSIUM [Concomitant]
     Active Substance: LOSARTAN POTASSIUM
     Indication: Cholangitis
     Dosage: 50 MILLIGRAM, QD
     Route: 048
     Dates: start: 20160117
  20. ERTAPENEM [Concomitant]
     Active Substance: ERTAPENEM
     Indication: Urosepsis
     Dosage: UNK
     Route: 042
     Dates: start: 20160503, end: 20160517
  21. Fusid [Concomitant]
     Indication: Hydronephrosis
     Dosage: 40 MILLIGRAM
     Route: 048
     Dates: start: 20160517, end: 201606
  22. LANSOPRAZOLE [Concomitant]
     Active Substance: LANSOPRAZOLE
     Dosage: 30 MILLIGRAM, QD
     Route: 048
     Dates: start: 2017
  23. LOSARTAN PLUS F [Concomitant]
     Dosage: 1 DOSAGE FORM, QD
     Dates: start: 2017
  24. TRIPTORELIN [Concomitant]
     Active Substance: TRIPTORELIN
     Dosage: 22.5 MILLIGRAM
     Route: 030
     Dates: start: 2017
  25. DABIGATRAN ETEXILATE MESYLATE [Concomitant]
     Active Substance: DABIGATRAN ETEXILATE MESYLATE
     Dosage: 110 MILLIGRAM, BID
     Route: 048
     Dates: start: 201705, end: 201706
  26. ATENOLOL [Concomitant]
     Active Substance: ATENOLOL
     Dosage: 50 MILLIGRAM, BID
     Route: 048
     Dates: start: 201705, end: 201706
  27. Procor [Concomitant]
     Indication: Atrial flutter
     Dosage: 400 MILLIGRAM, BID
     Route: 048
     Dates: start: 20170624, end: 2018
  28. CASODEX [Concomitant]
     Active Substance: BICALUTAMIDE
     Indication: Prostate cancer
     Dosage: 150 MILLIGRAM, QD
     Dates: start: 201804

REACTIONS (4)
  - Pneumonia klebsiella [Recovered/Resolved]
  - Urosepsis [Recovered/Resolved]
  - Duodenal ulcer haemorrhage [Recovered/Resolved]
  - Urinary tract infection bacterial [Recovered/Resolved]

NARRATIVE: CASE EVENT DATE: 20140727
